FAERS Safety Report 5926037-9 (Version None)
Quarter: 2008Q4

REPORT INFORMATION
  Report Type: 
  Country: None (occurrence: None)
  Receive Date: 20081021
  Receipt Date: 20081013
  Transmission Date: 20090506
  Serious: Yes (Hospitalization)
  Sender: FDA-Public Use
  Company Number: US-GENENTECH-268941

PATIENT
  Sex: Male
  Weight: 102.8 kg

DRUGS (19)
  1. BLINDED ANTI-CD40 [Suspect]
     Indication: DIFFUSE LARGE B-CELL LYMPHOMA
     Dosage: 8 MG/KG, 1/WEEK
     Route: 042
     Dates: start: 20080710, end: 20080826
  2. BLINDED PLACEBO [Suspect]
     Indication: DIFFUSE LARGE B-CELL LYMPHOMA
     Dosage: 8 MG/KG, 1/WEEK
     Route: 042
     Dates: start: 20080710, end: 20080826
  3. BLINDED ANTI-CD40 [Suspect]
     Dosage: 2 MG/KG, SINGLE
     Route: 042
     Dates: start: 20080702, end: 20080702
  4. BLINDED PLACEBO [Suspect]
     Dosage: 2 MG/KG, SINGLE
     Route: 042
     Dates: start: 20080702, end: 20080702
  5. BLINDED ANTI-CD40 [Suspect]
     Dosage: 4 MG/KG, SINGLE
     Route: 042
     Dates: start: 20080705, end: 20080705
  6. BLINDED PLACEBO [Suspect]
     Dosage: 4 MG/KG, SINGLE
     Route: 042
     Dates: start: 20080705, end: 20080705
  7. RITUXAN [Suspect]
     Indication: DIFFUSE LARGE B-CELL LYMPHOMA
     Dosage: 375 MG/M2, Q3W
     Route: 042
     Dates: start: 20080701, end: 20080819
  8. IFOSFAMIDE [Suspect]
     Indication: DIFFUSE LARGE B-CELL LYMPHOMA
     Dosage: 5000 MG/M2, Q3W
     Route: 042
     Dates: start: 20080704, end: 20080820
  9. CARBOPLATIN [Suspect]
     Indication: DIFFUSE LARGE B-CELL LYMPHOMA
     Dosage: 5 UNK, Q3W
     Route: 042
     Dates: start: 20080704, end: 20080820
  10. ETOPOSIDE [Suspect]
     Indication: DIFFUSE LARGE B-CELL LYMPHOMA
     Dosage: 100 MG/M2, Q3W
     Dates: start: 20080703, end: 20080821
  11. VALTREX [Concomitant]
     Indication: DRUG USE FOR UNKNOWN INDICATION
     Dosage: UNK
     Dates: start: 20080728
  12. PAXIL [Concomitant]
     Indication: DRUG USE FOR UNKNOWN INDICATION
     Dosage: UNK
     Dates: start: 20070101
  13. CIPROFLOXACIN [Concomitant]
     Indication: DRUG USE FOR UNKNOWN INDICATION
     Dosage: UNK
     Dates: start: 20080728
  14. ESOMEPRAZOLE MAGNESIUM [Concomitant]
     Indication: DRUG USE FOR UNKNOWN INDICATION
     Dosage: UNK
     Dates: start: 20050101
  15. LYSINE [Concomitant]
     Indication: DRUG USE FOR UNKNOWN INDICATION
     Dosage: UNK
     Dates: start: 20080201
  16. ACETAMINOPHEN [Concomitant]
     Indication: DRUG USE FOR UNKNOWN INDICATION
     Dosage: UNK
  17. AMLODIPINE BESYLATE/BENAZEPRIL HYDROCHLORIDE [Concomitant]
     Indication: DRUG USE FOR UNKNOWN INDICATION
     Dosage: UNK
     Dates: start: 20080501
  18. ONDANSETRON [Concomitant]
     Indication: DRUG USE FOR UNKNOWN INDICATION
     Dosage: UNK
     Dates: start: 20080704
  19. NEUPOGEN [Concomitant]
     Indication: DRUG USE FOR UNKNOWN INDICATION

REACTIONS (3)
  - ANAEMIA [None]
  - GASTROINTESTINAL HAEMORRHAGE [None]
  - THROMBOCYTOPENIA [None]
